FAERS Safety Report 8687541 (Version 2)
Quarter: 2012Q4

REPORT INFORMATION
  Report Type: Report from Study
  Country: TR (occurrence: TR)
  Receive Date: 20120727
  Receipt Date: 20121121
  Transmission Date: 20130627
  Serious: Yes (Other)
  Sender: FDA-Public Use
  Company Number: TR-CELGENEUS-161-C5013-12072143

PATIENT
  Age: 73 Year
  Sex: Male
  Weight: 80 kg

DRUGS (5)
  1. CC-5013 [Suspect]
     Indication: MYELOFIBROSIS
     Route: 048
     Dates: start: 201111
  2. HYDREA [Concomitant]
     Indication: SPLENOMEGALY
     Route: 065
     Dates: start: 20100520, end: 20111205
  3. HYDREA [Concomitant]
     Indication: BLOOD TRANSFUSION DEPENDENT
  4. DANAZOL [Concomitant]
     Indication: SPLENOMEGALY
     Dosage: 800 Milligram
     Route: 065
     Dates: start: 20100112, end: 20120505
  5. DANAZOL [Concomitant]
     Indication: BLOOD TRANSFUSION DEPENDENT

REACTIONS (1)
  - Renal cell carcinoma [Not Recovered/Not Resolved]
